FAERS Safety Report 19666793 (Version 1)
Quarter: 2021Q3

REPORT INFORMATION
  Report Type: Spontaneous
  Country: US (occurrence: US)
  Receive Date: 20210806
  Receipt Date: 20210806
  Transmission Date: 20211014
  Serious: Yes (Other)
  Sender: FDA-Public Use
  Company Number: US-EMCURE PHARMACEUTICALS LTD-2021-EPL-002540

PATIENT
  Age: 31 Year
  Sex: Male
  Weight: 75.9 kg

DRUGS (17)
  1. RISPERIDONE. [Suspect]
     Active Substance: RISPERIDONE
     Dosage: 0.5 MILLIGRAM, EVENTUALLY REACHING A MAXIMUM TOTAL DAILY DOSE OF 4 MG AFTER 7 MONTHS OF TITRATION
  2. CLOMIPRAMINE [Suspect]
     Active Substance: CLOMIPRAMINE
     Dosage: 25 MILLIGRAM, DAILY AT BEDTIME
  3. ATENOLOL. [Concomitant]
     Active Substance: ATENOLOL
     Dosage: 50 MILLIGRAM, DAILY
  4. HYDROCHLOROTHIAZIDE. [Concomitant]
     Active Substance: HYDROCHLOROTHIAZIDE
     Dosage: 50 MILLIGRAM, DAILY
  5. MULTIVITAMIN [Concomitant]
     Active Substance: VITAMINS
     Dosage: DAILY
  6. RISPERIDONE. [Suspect]
     Active Substance: RISPERIDONE
     Dosage: 6 MILLIGRAM
  7. CLOMIPRAMINE [Suspect]
     Active Substance: CLOMIPRAMINE
     Dosage: 100 MILLIGRAM, DAILY
  8. CLOMIPRAMINE [Suspect]
     Active Substance: CLOMIPRAMINE
     Indication: OBSESSIVE-COMPULSIVE DISORDER
     Dosage: 300 MILLIGRAM, MAXIMUM DAILY DOSE
  9. HYDROCHLOROTHIAZIDE. [Concomitant]
     Active Substance: HYDROCHLOROTHIAZIDE
     Dosage: 25 MILLIGRAM, DAILY
  10. MECLIZINE [Concomitant]
     Active Substance: MECLIZINE HYDROCHLORIDE
     Dosage: 12.5 MILLIGRAM, TID
  11. RISPERIDONE. [Suspect]
     Active Substance: RISPERIDONE
     Indication: AUTISM SPECTRUM DISORDER
     Dosage: 2 MILLIGRAM AT BEDTIME WITH VARIABLE DOSING OVER 4 YEARS AND A MAXIMUM TOTAL DAILY DOSE OF 4 MG
  12. CLOMIPRAMINE [Suspect]
     Active Substance: CLOMIPRAMINE
     Dosage: 200 MILLIGRAM DAILY AT BEDTIME
  13. GLATIRAMER [Concomitant]
     Active Substance: GLATIRAMER
     Dosage: 20 MILLIGRAM, DAILY
  14. RISPERIDONE. [Suspect]
     Active Substance: RISPERIDONE
     Dosage: HAD A BRIEF TRIAL OF RISPERIDONE ({1 WEEK)
  15. DIVALPROEX SODIUM. [Concomitant]
     Active Substance: DIVALPROEX SODIUM
     Dosage: 1250 MILLIGRAM, DAILY
  16. ATENOLOL. [Concomitant]
     Active Substance: ATENOLOL
     Dosage: 25 MILLIGRAM, DAILY
  17. DOCUSATE [Concomitant]
     Active Substance: DOCUSATE
     Dosage: 100 MILLIGRAM, DAILY

REACTIONS (1)
  - Pleurothotonus [Recovering/Resolving]
